FAERS Safety Report 22333660 (Version 1)
Quarter: 2023Q2

REPORT INFORMATION
  Report Type: Spontaneous
  Country: DE (occurrence: None)
  Receive Date: 20230517
  Receipt Date: 20230517
  Transmission Date: 20230721
  Serious: Yes (Other)
  Sender: FDA-Public Use
  Company Number: 2023A107057

PATIENT
  Age: 8 Year
  Sex: Male

DRUGS (12)
  1. BUDESONIDE [Suspect]
     Active Substance: BUDESONIDE
     Indication: Graft versus host disease
     Route: 055
  2. CYCLOPHOSPHAMIDE [Suspect]
     Active Substance: CYCLOPHOSPHAMIDE
     Indication: Graft versus host disease
     Dosage: 5.3 X 106 CD34 PLUS CELLS
  3. BUSULFAN [Suspect]
     Active Substance: BUSULFAN
     Indication: Graft versus host disease
     Dosage: 2.9 X 108 TNC
  4. METHOTREXATE [Suspect]
     Active Substance: METHOTREXATE
     Indication: Graft versus host disease
  5. ATG-FRESENIUS [Suspect]
     Active Substance: LAPINE T-LYMPHOCYTE IMMUNE GLOBULIN
     Indication: Graft versus host disease
     Dosage: 1.2 X 108 CD3 PLUS T CELLS
  6. AZATHIOPRINE [Suspect]
     Active Substance: AZATHIOPRINE
     Indication: Graft versus host disease
  7. MYCOPHENOLATE MOFETIL [Suspect]
     Active Substance: MYCOPHENOLATE MOFETIL
     Indication: Graft versus host disease
  8. LYMPHOCYTES [Suspect]
     Active Substance: LYMPHOCYTES
     Indication: Graft versus host disease
  9. CYCLOSPORINE [Suspect]
     Active Substance: CYCLOSPORINE
     Indication: Graft versus host disease
  10. ALDESLEUKIN [Suspect]
     Active Substance: ALDESLEUKIN
     Indication: Graft versus host disease
  11. GRAFALON [Suspect]
     Active Substance: LAPINE T-LYMPHOCYTE IMMUNE GLOBULIN
     Indication: Graft versus host disease
  12. PREDNISOLONE [Suspect]
     Active Substance: PREDNISOLONE
     Indication: Graft versus host disease

REACTIONS (13)
  - Sepsis [Recovering/Resolving]
  - Eye irritation [Recovering/Resolving]
  - Hypertension [Recovering/Resolving]
  - Extremity contracture [Recovering/Resolving]
  - Disease progression [Recovering/Resolving]
  - Quality of life decreased [Recovering/Resolving]
  - Dry eye [Recovering/Resolving]
  - Bacterial infection [Recovering/Resolving]
  - Chronic graft versus host disease [Recovering/Resolving]
  - Pain [Recovering/Resolving]
  - Acute graft versus host disease [Recovering/Resolving]
  - Dysphagia [Recovering/Resolving]
  - Drug ineffective [Recovering/Resolving]
